FAERS Safety Report 4767566-3 (Version None)
Quarter: 2005Q3

REPORT INFORMATION
  Report Type: 
  Country: None (occurrence: None)
  Receive Date: 20050913
  Receipt Date: 20050907
  Transmission Date: 20060218
  Serious: Yes (Death)
  Sender: FDA-Public Use
  Company Number: US-JNJFOC-20050901716

PATIENT
  Age: 52 Year
  Sex: Male

DRUGS (3)
  1. ACETAMINOPHEN [Suspect]
     Route: 048
  2. ACETAMINOPHEN [Suspect]
     Dosage: 35-40 UNKNOWN STRENGTH ACETAMINOPHEN
     Route: 048
  3. FLUOXETINE [Concomitant]

REACTIONS (11)
  - ATRIAL FIBRILLATION [None]
  - COMPLETED SUICIDE [None]
  - DRUG LEVEL INCREASED [None]
  - HEPATIC FAILURE [None]
  - HYPOTENSION [None]
  - INTENTIONAL MISUSE [None]
  - LACTIC ACIDOSIS [None]
  - LOSS OF CONSCIOUSNESS [None]
  - OVERDOSE [None]
  - RENAL FAILURE [None]
  - TACHYCARDIA [None]
